FAERS Safety Report 5055800-4 (Version None)
Quarter: 2006Q3

REPORT INFORMATION
  Report Type: 
  Country: None (occurrence: None)
  Receive Date: 20060720
  Receipt Date: 20060714
  Transmission Date: 20061208
  Serious: Yes (Death)
  Sender: FDA-Public Use
  Company Number: IL-NOVOPROD-255045

PATIENT

DRUGS (1)
  1. NOVOSEVEN [Suspect]
     Indication: PULMONARY HAEMORRHAGE
     Dosage: 90 UG/KG, UNK
     Dates: start: 20060705

REACTIONS (1)
  - DEATH NEONATAL [None]
